FAERS Safety Report 9306611 (Version 1)
Quarter: 2013Q2

REPORT INFORMATION
  Report Type: Spontaneous
  Country: US (occurrence: US)
  Receive Date: 20130523
  Receipt Date: 20130523
  Transmission Date: 20140414
  Serious: Yes (Death)
  Sender: FDA-Public Use
  Company Number: US-GILEAD-2013-0075598

PATIENT
  Age: 75 Year
  Sex: Female

DRUGS (13)
  1. LETAIRIS [Suspect]
     Indication: PULMONARY HYPERTENSION
     Dosage: 10 MG, QD
     Route: 048
     Dates: start: 201107
  2. LETAIRIS [Suspect]
     Indication: CONNECTIVE TISSUE DISORDER
  3. LETAIRIS [Suspect]
     Indication: CREST SYNDROME
  4. OXYGEN [Concomitant]
  5. PRAVASTATIN [Concomitant]
  6. LEVOTHYROXINE [Concomitant]
  7. SUCRALFATE [Concomitant]
  8. FAMOTIDINE [Concomitant]
  9. PANTOPRAZOLE [Concomitant]
  10. TRAMADOL [Concomitant]
  11. VITAMIN B12                        /00056201/ [Concomitant]
  12. CALCIUM + VIT D [Concomitant]
  13. WARFARIN [Concomitant]

REACTIONS (1)
  - Death [Fatal]
